FAERS Safety Report 4443166-X (Version None)
Quarter: 2004Q3

REPORT INFORMATION
  Report Type: 
  Country: None (occurrence: None)
  Receive Date: 20040901
  Receipt Date: 20040823
  Transmission Date: 20050211
  Serious: Yes (Other)
  Sender: FDA-Public Use
  Company Number: 2004039285

PATIENT
  Sex: Female
  Weight: 81.6475 kg

DRUGS (9)
  1. NORVASC [Suspect]
     Indication: HYPERTENSION
     Dosage: 5 MG (5 MG, 1 IN 1 D), ORAL
     Route: 048
     Dates: start: 20010101
  2. ROFECOXIB [Suspect]
     Indication: PAIN
     Dosage: 25 MG (25 MG, 1 IN 1 D), ORAL
     Route: 048
     Dates: start: 20040301
  3. ATENOLOL [Suspect]
     Indication: HYPERTENSION
     Dosage: ORAL
     Route: 048
     Dates: start: 20030101
  4. HYDROCHLOROTHIAZIDE [Concomitant]
  5. ISOSORBIDE DINITRATE [Concomitant]
  6. DYAZIDE [Concomitant]
  7. RISEDRONATE SODIUM [Concomitant]
  8. POTASSIUM CHLORIDE [Concomitant]
  9. FUROSEMIDE [Concomitant]

REACTIONS (9)
  - BLOOD POTASSIUM DECREASED [None]
  - BLOOD PRESSURE INADEQUATELY CONTROLLED [None]
  - DRUG INTERACTION [None]
  - ERYTHEMA [None]
  - HEART RATE DECREASED [None]
  - OEDEMA PERIPHERAL [None]
  - RASH [None]
  - SELF-MEDICATION [None]
  - STASIS DERMATITIS [None]
